FAERS Safety Report 4778742-8 (Version None)
Quarter: 2005Q3

REPORT INFORMATION
  Report Type: 
  Country: None (occurrence: None)
  Receive Date: 20050926
  Receipt Date: 20050826
  Transmission Date: 20060218
  Serious: Yes (Other)
  Sender: FDA-Public Use
  Company Number: PHEH2005US09572

PATIENT
  Age: 48 Year
  Sex: Female

DRUGS (8)
  1. GLEEVEC [Suspect]
     Indication: CHRONIC MYELOID LEUKAEMIA
     Dosage: 600 MG, QD
     Route: 048
     Dates: start: 20040901
  2. GLEEVEC [Suspect]
     Dosage: 400 MG, QD
     Route: 048
  3. ZOLOFT [Concomitant]
     Indication: DEPRESSION
     Dosage: 50 MG, QD
     Dates: start: 20030101
  4. LEVOXYL [Concomitant]
     Indication: HYPOTHYROIDISM
  5. LIOTHYRONINE [Concomitant]
     Indication: HYPOTHYROIDISM
     Dosage: 0.1 MG, QD
     Route: 048
  6. HORMONES [Concomitant]
     Indication: HORMONE REPLACEMENT THERAPY
  7. AMBIEN [Concomitant]
     Dosage: UNK, PRN
  8. GAS-X [Concomitant]
     Route: 048

REACTIONS (9)
  - ABDOMINAL DISTENSION [None]
  - CONJUNCTIVAL HAEMORRHAGE [None]
  - DYSPEPSIA [None]
  - EYE PAIN [None]
  - FLATULENCE [None]
  - GASTROINTESTINAL PAIN [None]
  - HYPOAESTHESIA [None]
  - PHOTOPSIA [None]
  - VISUAL ACUITY REDUCED [None]
